FAERS Safety Report 6509316-6 (Version None)
Quarter: 2009Q4

REPORT INFORMATION
  Report Type: 
  Country: None (occurrence: None)
  Receive Date: 20091222
  Receipt Date: 20091210
  Transmission Date: 20100525
  Serious: Yes (Hospitalization)
  Sender: FDA-Public Use
  Company Number: FR-RANBAXY-2009RR-29606

PATIENT
  Age: 67 Year
  Sex: Male

DRUGS (3)
  1. LAMOTRIGINE [Suspect]
     Dosage: 200 MG, UNK
     Dates: start: 20040414
  2. LAMOTRIGINE [Suspect]
     Dosage: UNK
  3. PHENOBARBITAL [Suspect]
     Indication: EPILEPSY
     Dosage: UNK MG, QD

REACTIONS (1)
  - DRUG RASH WITH EOSINOPHILIA AND SYSTEMIC SYMPTOMS [None]
